FAERS Safety Report 9931936 (Version 1)
Quarter: 2014Q1

REPORT INFORMATION
  Report Type: Spontaneous
  Country: US (occurrence: None)
  Receive Date: 20140226
  Receipt Date: 20140226
  Transmission Date: 20141002
  Serious: No
  Sender: FDA-Public Use
  Company Number: SYM-2013-01502

PATIENT
  Sex: Female

DRUGS (1)
  1. CARDIZEM CD [Suspect]
     Indication: ANEURYSM
     Route: 048
     Dates: start: 1999

REACTIONS (2)
  - Aneurysm [None]
  - Cluster headache [None]
